FAERS Safety Report 26075658 (Version 1)
Quarter: 2025Q4

REPORT INFORMATION
  Report Type: Report from Study
  Country: US (occurrence: US)
  Receive Date: 20251121
  Receipt Date: 20251121
  Transmission Date: 20260117
  Serious: Yes (Other)
  Sender: OTSUKA
  Company Number: US-MMM-Otsuka-2QU7ZG9W

PATIENT
  Age: 46 Year
  Sex: Male

DRUGS (1)
  1. TOLVAPTAN [Suspect]
     Active Substance: TOLVAPTAN
     Indication: Product used for unknown indication
     Dosage: UNK
     Route: 065

REACTIONS (1)
  - Dialysis [Unknown]

NARRATIVE: CASE EVENT DATE: 20250801
